FAERS Safety Report 23594997 (Version 1)
Quarter: 2024Q1

REPORT INFORMATION
  Report Type: Spontaneous
  Country: FR (occurrence: None)
  Receive Date: 20240305
  Receipt Date: 20240305
  Transmission Date: 20240410
  Serious: Yes (Hospitalization)
  Sender: FDA-Public Use
  Company Number: FR-ROCHE-3514673

PATIENT
  Age: 62 Year
  Sex: Female

DRUGS (1)
  1. OCREVUS [Suspect]
     Active Substance: OCRELIZUMAB
     Indication: Product used for unknown indication
     Dosage: THE INFUSIONS OF OCRELIZUMAB TOOK PLACE ON 11/JAN/2021, 18/NOV/2021 AND 30/MAY/2022.
     Route: 042

REACTIONS (3)
  - COVID-19 [Unknown]
  - Erysipelas [Unknown]
  - Coxsackie viral infection [Unknown]

NARRATIVE: CASE EVENT DATE: 20210101
